FAERS Safety Report 18101843 (Version 2)
Quarter: 2020Q3

REPORT INFORMATION
  Report Type: Spontaneous
  Country: US (occurrence: US)
  Receive Date: 20200802
  Receipt Date: 20200915
  Transmission Date: 20201103
  Serious: Yes (Other)
  Sender: FDA-Public Use
  Company Number: US-NOVOPROD-742634

PATIENT
  Sex: Male

DRUGS (1)
  1. OZEMPIC [Suspect]
     Active Substance: SEMAGLUTIDE
     Indication: PRODUCT USED FOR UNKNOWN INDICATION
     Dosage: 0.5 MG, QW
     Route: 058
     Dates: start: 2020

REACTIONS (2)
  - Product storage error [Unknown]
  - Chest pain [Recovered/Resolved]

NARRATIVE: CASE EVENT DATE: 202007
